FAERS Safety Report 5287959-8 (Version None)
Quarter: 2007Q2

REPORT INFORMATION
  Report Type: 
  Country: None (occurrence: None)
  Receive Date: 20070405
  Receipt Date: 20070329
  Transmission Date: 20071010
  Serious: Yes (Other)
  Sender: FDA-Public Use
  Company Number: US-JNJFOC-20070400217

PATIENT
  Sex: Female
  Weight: 90.72 kg

DRUGS (4)
  1. DURAGESIC-100 [Suspect]
     Indication: PAIN MANAGEMENT
     Route: 062
  2. BENAZEPRIL HYDROCHLORIDE [Concomitant]
     Indication: BLOOD PRESSURE
     Route: 048
  3. VERAPAMIL [Concomitant]
     Indication: BLOOD PRESSURE
     Route: 048
  4. ZOLOFT [Concomitant]
     Indication: DEPRESSION
     Route: 048

REACTIONS (5)
  - ANXIETY [None]
  - INSOMNIA [None]
  - NEURALGIA [None]
  - PAIN [None]
  - PHARMACEUTICAL PRODUCT COMPLAINT [None]
